FAERS Safety Report 23397053 (Version 1)
Quarter: 2024Q1

REPORT INFORMATION
  Report Type: Spontaneous
  Country: AU (occurrence: AU)
  Receive Date: 20240112
  Receipt Date: 20240112
  Transmission Date: 20240410
  Serious: Yes (Death, Other)
  Sender: FDA-Public Use
  Company Number: AU-SA-SAC20240112000286

PATIENT
  Age: 91 Year

DRUGS (1)
  1. CERDELGA [Suspect]
     Active Substance: ELIGLUSTAT
     Dosage: UNK
     Route: 065

REACTIONS (2)
  - Parkinson^s disease [Fatal]
  - Renal disorder [Fatal]
